FAERS Safety Report 7680640-7 (Version None)
Quarter: 2011Q3

REPORT INFORMATION
  Report Type: 
  Country: None (occurrence: None)
  Receive Date: 20110812
  Receipt Date: 20110805
  Transmission Date: 20111222
  Serious: Yes (Other)
  Sender: FDA-Public Use
  Company Number: US-SANOFI-AVENTIS-2011SA051511

PATIENT
  Sex: Female

DRUGS (3)
  1. FEXOFENADINE HYDROCHLORIDE/PSEUDOEPHEDRINE HYDROCHLORIDE [Suspect]
     Route: 048
  2. ALLEGRA D 24 HOUR [Suspect]
     Indication: SINUS DISORDER
     Route: 048
     Dates: start: 20100101
  3. ALLEGRA D 24 HOUR [Suspect]
     Route: 048
     Dates: start: 20100101

REACTIONS (3)
  - MEDICATION RESIDUE [None]
  - UNEVALUABLE EVENT [None]
  - ANORECTAL OPERATION [None]
